FAERS Safety Report 23144093 (Version 1)
Quarter: 2023Q4

REPORT INFORMATION
  Report Type: Spontaneous
  Country: CN (occurrence: CN)
  Receive Date: 20231103
  Receipt Date: 20231103
  Transmission Date: 20240109
  Serious: Yes (Other)
  Sender: FDA-Public Use
  Company Number: CN-AMGEN-CHNSP2023195987

PATIENT
  Age: 69 Year
  Sex: Male

DRUGS (2)
  1. XGEVA [Suspect]
     Active Substance: DENOSUMAB
     Indication: Metastases to bone
     Dosage: 120 MILLIGRAM/TIME, Q4WK
     Route: 065
     Dates: start: 20211101
  2. XGEVA [Suspect]
     Active Substance: DENOSUMAB
     Indication: Prostate cancer

REACTIONS (5)
  - Osteomyelitis [Not Recovered/Not Resolved]
  - Necrosis [Not Recovered/Not Resolved]
  - Toothache [Not Recovered/Not Resolved]
  - Loose tooth [Not Recovered/Not Resolved]
  - Hypoaesthesia [Not Recovered/Not Resolved]
